FAERS Safety Report 16721544 (Version 1)
Quarter: 2019Q3

REPORT INFORMATION
  Report Type: Spontaneous
  Country: US (occurrence: US)
  Receive Date: 20190820
  Receipt Date: 20190820
  Transmission Date: 20191005
  Serious: No
  Sender: FDA-Public Use
  Company Number: US-BIODELIVERY SCIENCES INTERNATIONAL-2018BDSI0532

PATIENT
  Age: 48 Year
  Sex: Female
  Weight: 83.99 kg

DRUGS (2)
  1. BUPRENORPHINE. [Suspect]
     Active Substance: BUPRENORPHINE
     Indication: PAIN
     Route: 002
  2. LORAZEPAM. [Concomitant]
     Active Substance: LORAZEPAM
     Indication: PRODUCT USED FOR UNKNOWN INDICATION
     Dosage: UNK; UNK

REACTIONS (9)
  - Wrong technique in product usage process [Recovered/Resolved]
  - Rhinalgia [Not Recovered/Not Resolved]
  - Product solubility abnormal [Unknown]
  - Oral administration complication [Unknown]
  - Hypoaesthesia oral [Recovered/Resolved]
  - Headache [Unknown]
  - Sinus disorder [Not Recovered/Not Resolved]
  - Cough [Unknown]
  - Product label issue [Unknown]

NARRATIVE: CASE EVENT DATE: 201809
